FAERS Safety Report 16486948 (Version 1)
Quarter: 2019Q3

REPORT INFORMATION
  Report Type: Spontaneous
  Country: US (occurrence: US)
  Receive Date: 20190625
  Receipt Date: 20190625
  Transmission Date: 20191004
  Serious: Yes (Other)
  Sender: FDA-Public Use
  Company Number: None

PATIENT
  Age: 64 Year
  Sex: Female
  Weight: 94.5 kg

DRUGS (1)
  1. VENLAFAXINE HCL [Suspect]
     Active Substance: VENLAFAXINE HYDROCHLORIDE
     Indication: DEPRESSION
     Dosage: ?          QUANTITY:1 CAPSULE(S);?
     Route: 048

REACTIONS (7)
  - Depression [None]
  - Anger [None]
  - Paradoxical drug reaction [None]
  - Mood swings [None]
  - Product substitution issue [None]
  - Condition aggravated [None]
  - Therapeutic response changed [None]

NARRATIVE: CASE EVENT DATE: 20190610
